FAERS Safety Report 15491953 (Version 2)
Quarter: 2018Q4

REPORT INFORMATION
  Report Type: Spontaneous
  Country: US (occurrence: US)
  Receive Date: 20181012
  Receipt Date: 20181219
  Transmission Date: 20190205
  Serious: Yes (Other)
  Sender: FDA-Public Use
  Company Number: US-009507513-1810USA001847

PATIENT
  Sex: Female

DRUGS (1)
  1. NEXPLANON [Suspect]
     Active Substance: ETONOGESTREL
     Dosage: 68 MG, A ROD
     Route: 059

REACTIONS (4)
  - Complication associated with device [Recovered/Resolved]
  - Device dislocation [Unknown]
  - Complication of device removal [Recovered/Resolved]
  - Weight increased [Unknown]
